FAERS Safety Report 5196534-5 (Version None)
Quarter: 2006Q4

REPORT INFORMATION
  Report Type: 
  Country: None (occurrence: None)
  Receive Date: 20061227
  Receipt Date: 20061214
  Transmission Date: 20070319
  Serious: Yes (Other)
  Sender: FDA-Public Use
  Company Number: 234034

PATIENT
  Age: 72 Year
  Sex: Female
  Weight: 62 kg

DRUGS (6)
  1. MABTHERA(RITUXIMAB) CONC FOR SOLUTION FOR INFUSION [Suspect]
     Indication: DRUG USE FOR UNKNOWN INDICATION
     Dosage: 630 MG, INTRAVENOUS
     Route: 042
  2. DEXAMETHASONE TAB [Concomitant]
  3. ONDANSETRON HCL [Concomitant]
  4. DIPHENHYDARMINE DIPHENHYDRAMINE) [Concomitant]
  5. ACETAMINOPHEN [Concomitant]
  6. ALLOPURINOL [Concomitant]

REACTIONS (1)
  - GRAND MAL CONVULSION [None]
